FAERS Safety Report 9437626 (Version 1)
Quarter: 2013Q3

REPORT INFORMATION
  Report Type: Spontaneous
  Country: GB (occurrence: GB)
  Receive Date: 20130802
  Receipt Date: 20130802
  Transmission Date: 20140515
  Serious: Yes (Hospitalization, Disabling, Other)
  Sender: FDA-Public Use
  Company Number: GB-B.I. PHARMACEUTICALS,INC./RIDGEFIELD-2013-UK-01576UK

PATIENT
  Age: 57 Year
  Sex: Male

DRUGS (6)
  1. MIRAPEXIN [Suspect]
     Indication: RESTLESS LEGS SYNDROME
     Dosage: 180 MCG
     Route: 048
     Dates: start: 2013, end: 20130704
  2. ALLOPURINOL [Concomitant]
     Dates: start: 201302
  3. CLARITHROMYCIN [Concomitant]
     Dates: start: 201301
  4. DOXYCYCLINE [Concomitant]
     Dates: start: 20130307
  5. NAPROXEN [Concomitant]
     Dates: start: 201302
  6. OMEPRAZOLE [Concomitant]
     Dates: start: 201302

REACTIONS (6)
  - Chronic hepatitis [Unknown]
  - Cholelithiasis [Unknown]
  - Jaundice [Not Recovered/Not Resolved]
  - Lethargy [Not Recovered/Not Resolved]
  - Liver function test abnormal [Not Recovered/Not Resolved]
  - Chromaturia [Unknown]
